FAERS Safety Report 20022088 (Version 1)
Quarter: 2021Q4

REPORT INFORMATION
  Report Type: Report from Study
  Country: US (occurrence: US)
  Receive Date: 20211102
  Receipt Date: 20211102
  Transmission Date: 20220303
  Serious: No
  Sender: FDA-Public Use
  Company Number: US-Ipsen Biopharmaceuticals, Inc.-2021-26445

PATIENT
  Age: 45 Year
  Sex: Female

DRUGS (1)
  1. SOMATULINE DEPOT [Suspect]
     Active Substance: LANREOTIDE ACETATE
     Indication: Acromegaly
     Route: 058
     Dates: start: 2016

REACTIONS (6)
  - Swelling [Unknown]
  - Abdominal pain [Unknown]
  - Tenderness [Unknown]
  - Constipation [Unknown]
  - Alopecia [Unknown]
  - Off label use [Unknown]
